FAERS Safety Report 25504848 (Version 2)
Quarter: 2025Q3

REPORT INFORMATION
  Report Type: Spontaneous
  Country: EU (occurrence: EU)
  Receive Date: 20250702
  Receipt Date: 20250707
  Transmission Date: 20251021
  Serious: Yes (Life-Threatening, Hospitalization, Other)
  Sender: PFIZER
  Company Number: EU-MLMSERVICE-20250620-PI550743-00044-1

PATIENT
  Age: 57 Year
  Sex: Female

DRUGS (3)
  1. PIROXICAM [Suspect]
     Active Substance: PIROXICAM
  2. ALPRAZOLAM [Suspect]
     Active Substance: ALPRAZOLAM
  3. TRAMADOL [Suspect]
     Active Substance: TRAMADOL

REACTIONS (9)
  - Intentional overdose [Unknown]
  - Poisoning deliberate [Unknown]
  - Acidosis [Recovered/Resolved]
  - Circulatory collapse [Recovered/Resolved]
  - Coma [Recovered/Resolved]
  - Embolism venous [Recovered/Resolved]
  - Air embolism [Recovered/Resolved]
  - Cardiac arrest [Recovered/Resolved]
  - Paradoxical embolism [Recovered/Resolved]
